FAERS Safety Report 14573558 (Version 1)
Quarter: 2018Q1

REPORT INFORMATION
  Report Type: Spontaneous
  Country: HR (occurrence: HR)
  Receive Date: 20180226
  Receipt Date: 20180226
  Transmission Date: 20180509
  Serious: Yes (Life-Threatening)
  Sender: FDA-Public Use
  Company Number: HR-PFIZER INC-2018077935

PATIENT
  Age: 79 Year
  Sex: Female

DRUGS (3)
  1. CO PERINEVA [Concomitant]
     Active Substance: INDAPAMIDE\PERINDOPRIL ERBUMINE
     Indication: HYPERTENSION
     Dosage: 1 DF, 1X/DAY; 1 DF - 4 MG PERINDOPRIL ERBUMINE + 1.25 MG INDAPAMIDE
     Route: 048
  2. INSPRA [Suspect]
     Active Substance: EPLERENONE
     Indication: HYPERTENSION
     Dosage: 25 MG, 1X/DAY
     Route: 048
     Dates: start: 20180111, end: 20180115
  3. CARVELOL [Concomitant]
     Indication: HYPERTENSION
     Dosage: 6.25 MG, 1X/DAY
     Route: 048

REACTIONS (4)
  - Visual acuity reduced transiently [Recovered/Resolved]
  - Hypotension [Recovered/Resolved]
  - Dizziness [Recovered/Resolved]
  - Asthenia [Recovered/Resolved]

NARRATIVE: CASE EVENT DATE: 20180111
